FAERS Safety Report 6398680-7 (Version None)
Quarter: 2009Q4

REPORT INFORMATION
  Report Type: 
  Country: None (occurrence: None)
  Receive Date: 20091013
  Receipt Date: 20090930
  Transmission Date: 20100525
  Serious: Yes (Hospitalization, Other)
  Sender: FDA-Public Use
  Company Number: US-AVENTIS-200716003US

PATIENT
  Sex: Female

DRUGS (9)
  1. KETEK [Suspect]
     Indication: SINUSITIS
     Dosage: DOSE: 2 TABS OF 400 MG
     Route: 048
     Dates: start: 20050805, end: 20050811
  2. PREDNISONE [Suspect]
     Indication: SWELLING
     Dosage: DOSE: 40,30,20
     Dates: start: 20050824, end: 20050827
  3. AUGMENTIN '125' [Concomitant]
     Dosage: DOSE: UNK
  4. ADVIL [Concomitant]
     Dosage: DOSE: UNK
  5. NEXIUM [Concomitant]
     Dosage: DOSE: UNK
  6. PRILOSEC [Concomitant]
     Dosage: DOSE: UNK
  7. FLONASE [Concomitant]
  8. AMOXICILLIN + CLAVULANATE POTASSIUM [Concomitant]
     Dates: start: 20050915
  9. IMURAN                             /00001501/ [Concomitant]
     Dosage: DOSE: UNK

REACTIONS (9)
  - ARTHRALGIA [None]
  - AUTOIMMUNE HEPATITIS [None]
  - BLOOD BILIRUBIN INCREASED [None]
  - CHOLECYSTITIS [None]
  - HEPATITIS [None]
  - HEPATOMEGALY [None]
  - LABORATORY TEST ABNORMAL [None]
  - LIVER FUNCTION TEST ABNORMAL [None]
  - POLYARTHRITIS [None]
